FAERS Safety Report 5421120-9 (Version None)
Quarter: 2007Q3

REPORT INFORMATION
  Report Type: 
  Country: None (occurrence: None)
  Receive Date: 20070821
  Receipt Date: 20070810
  Transmission Date: 20080115
  Serious: Yes (Death, Life-Threatening, Hospitalization, Disabling, Other)
  Sender: FDA-Public Use
  Company Number: BR-SANOFI-SYNTHELABO-D01200704594

PATIENT
  Sex: Male
  Weight: 53 kg

DRUGS (7)
  1. CRESTOR [Concomitant]
  2. DILTIAZEM [Concomitant]
  3. SIMVASTATIN [Concomitant]
  4. ASPIRIN [Concomitant]
     Indication: ATRIAL FIBRILLATION
     Dosage: 100 MG
     Route: 048
     Dates: start: 20031124
  5. IRBESARTAN [Suspect]
     Indication: BLOOD PRESSURE DECREASED
     Dosage: 150 MG/DAY FOR 2 WEEKS FOLLOWING BY 300 MG/DAY
     Route: 048
     Dates: start: 20031124, end: 20070721
  6. CLOPIDOGREL [Suspect]
     Indication: ATRIAL FIBRILLATION
     Route: 048
     Dates: start: 20031124, end: 20070721
  7. DIGOXIN [Concomitant]

REACTIONS (2)
  - GENERALISED OEDEMA [None]
  - SEPSIS [None]
